FAERS Safety Report 23884377 (Version 3)
Quarter: 2025Q3

REPORT INFORMATION
  Report Type: Spontaneous
  Country: US (occurrence: US)
  Receive Date: 20240522
  Receipt Date: 20250820
  Transmission Date: 20251020
  Serious: No
  Sender: CATALYST PHARMA
  Company Number: US-CATALYST PHARMACEUTICALS-US-CATA-24-00338

PATIENT
  Age: 12 Year
  Sex: Male
  Weight: 45.351 kg

DRUGS (9)
  1. AGAMREE [Suspect]
     Active Substance: VAMOROLONE
     Indication: Duchenne muscular dystrophy
     Dosage: 3.8 ML, ONCE DAILY
     Route: 048
     Dates: start: 20240410, end: 20240422
  2. AGAMREE [Suspect]
     Active Substance: VAMOROLONE
     Dosage: 3 ML, DAILY
     Route: 048
     Dates: start: 20240422
  3. PREDNISONE [Concomitant]
     Active Substance: PREDNISONE
     Indication: Product used for unknown indication
     Dosage: 10 MG, DAILY
     Route: 065
  4. EPLERENONE [Concomitant]
     Active Substance: EPLERENONE
     Indication: Cardiovascular disorder
     Dosage: 25 MG, DAILY
     Route: 048
  5. LISINOPRIL [Concomitant]
     Active Substance: LISINOPRIL
     Indication: Cardiovascular disorder
     Dosage: 2.5 MG, DAILY
     Route: 048
  6. MULTIVITAMIN GUMMY [Concomitant]
     Indication: Hypovitaminosis
     Dosage: ONE TABLET DAILY
     Route: 065
  7. BABY VITAMIN D3 [Concomitant]
     Indication: Hypovitaminosis
     Dosage: 10 MCG, DAILY
     Route: 048
  8. BABY VITAMIN D3 [Concomitant]
     Dosage: 1 ML DAILY
     Route: 048
  9. EXONDYS 51 [Concomitant]
     Active Substance: ETEPLIRSEN
     Indication: Duchenne muscular dystrophy
     Dosage: 1300 ML WEEKLY
     Route: 042

REACTIONS (6)
  - Rash [Not Recovered/Not Resolved]
  - Emotional disorder [Not Recovered/Not Resolved]
  - Mood altered [Not Recovered/Not Resolved]
  - Behaviour disorder [Recovering/Resolving]
  - Irritability [Not Recovered/Not Resolved]
  - Sleep disorder [Not Recovered/Not Resolved]

NARRATIVE: CASE EVENT DATE: 20240401
